FAERS Safety Report 12093016 (Version 2)
Quarter: 2016Q1

REPORT INFORMATION
  Report Type: Spontaneous
  Country: US (occurrence: US)
  Receive Date: 20160219
  Receipt Date: 20160329
  Transmission Date: 20160526
  Serious: No
  Sender: FDA-Public Use
  Company Number: US-PFIZER INC-2016036352

PATIENT
  Age: 51 Year
  Sex: Female
  Weight: 57.15 kg

DRUGS (1)
  1. ATORVASTATIN CALCIUM. [Suspect]
     Active Substance: ATORVASTATIN CALCIUM
     Indication: CARDIOVASCULAR DISORDER
     Dosage: 80 MG TABLET, ONE TABLET AT BEDTIME
     Route: 048

REACTIONS (3)
  - Chest pain [Unknown]
  - Drug dispensing error [Not Recovered/Not Resolved]
  - Drug ineffective [Unknown]
